FAERS Safety Report 9191411 (Version 1)
Quarter: 2013Q1

REPORT INFORMATION
  Report Type: Report from Study
  Country: US (occurrence: US)
  Receive Date: 20130326
  Receipt Date: 20130326
  Transmission Date: 20140127
  Serious: Yes (Hospitalization)
  Sender: FDA-Public Use
  Company Number: US-MILLENNIUM PHARMACEUTICALS, INC.-2013-02256

PATIENT
  Age: 47 Year
  Sex: Male

DRUGS (4)
  1. VELCADE [Suspect]
     Indication: NON-HODGKIN^S LYMPHOMA
     Dosage: UNK
     Dates: start: 20121015, end: 20130315
  2. RITUXIMAB [Suspect]
     Indication: NON-HODGKIN^S LYMPHOMA
     Dosage: UNK
     Dates: start: 20121015, end: 20130315
  3. CYCLOPHOSPHAMIDE [Suspect]
     Indication: NON-HODGKIN^S LYMPHOMA
     Dosage: UNK
     Dates: start: 20121015, end: 20130315
  4. PREDNISONE [Suspect]
     Indication: NON-HODGKIN^S LYMPHOMA
     Dosage: UNK
     Dates: start: 20121015, end: 20130315

REACTIONS (1)
  - Toothache [Unknown]
